FAERS Safety Report 11889620 (Version 1)
Quarter: 2016Q1

REPORT INFORMATION
  Report Type: Spontaneous
  Country: US (occurrence: US)
  Receive Date: 20160105
  Receipt Date: 20160105
  Transmission Date: 20160526
  Serious: Yes (Hospitalization)
  Sender: FDA-Public Use
  Company Number: US-PFIZER INC-2015471918

PATIENT
  Age: 45 Year
  Sex: Female

DRUGS (24)
  1. HEPARIN [Concomitant]
     Active Substance: HEPARIN SODIUM
     Dosage: 18 IU/KG/HOUR
     Route: 041
  2. XALKORI [Suspect]
     Active Substance: CRIZOTINIB
     Indication: LUNG CANCER METASTATIC
     Dosage: 250 MG, 2X/DAY
     Route: 048
  3. SUBLIMAZE [Concomitant]
     Active Substance: FENTANYL CITRATE
     Indication: PAIN
     Dosage: 25 UG, EVERY 2 HOURS, AS NEEDED
     Route: 042
  4. HEPARIN [Concomitant]
     Active Substance: HEPARIN SODIUM
     Dosage: 80 IU/KG, AS NEEDED
     Route: 042
  5. ZOSYN [Concomitant]
     Active Substance: PIPERACILLIN SODIUM\TAZOBACTAM SODIUM
     Dosage: 4.5 MG, IN NACL 0.9% 100 ML IVPB MINI-BAG PLUS, THEN 4.5 MG IN 200 ML/HR, EVERY 5 HOURS
     Route: 042
  6. OXYCONTIN [Concomitant]
     Active Substance: OXYCODONE HYDROCHLORIDE
     Dosage: 10 MG, SINGLE
     Route: 048
  7. NARCAN [Concomitant]
     Active Substance: NALOXONE HYDROCHLORIDE
     Indication: TOXICITY TO VARIOUS AGENTS
     Dosage: 0.1 MG, AS NEEDED (EVERY 2 MINUTES)
     Route: 042
  8. PERI-COLACE [Concomitant]
     Active Substance: CASANTHRANOL\DOCUSATE SODIUM
     Indication: CONSTIPATION
     Dosage: 8.6/50 MG PER TABLET, 2 TIMES DAILY, AS NEEDED
     Route: 048
  9. PEPCID [Concomitant]
     Active Substance: FAMOTIDINE
     Dosage: 20 MG, EVERY 12 HOURS
     Route: 040
  10. HEPARIN [Concomitant]
     Active Substance: HEPARIN SODIUM
     Indication: ACTIVATED PARTIAL THROMBOPLASTIN TIME PROLONGED
     Dosage: 40 IU/KG, AS NEEDED
     Route: 042
  11. MORPHINE [Concomitant]
     Active Substance: MORPHINE
     Dosage: 4 MG, SINGLE
     Route: 042
  12. SUBLIMAZE [Concomitant]
     Active Substance: FENTANYL CITRATE
     Indication: PAIN
     Dosage: 0-200 MCG/HR (0-20 ML/HR)
     Route: 041
  13. NACL [Concomitant]
     Active Substance: SODIUM CHLORIDE
     Indication: FLUSHING
     Dosage: 20 ML/HR, AS NEEDED
     Route: 042
  14. PEPCID [Concomitant]
     Active Substance: FAMOTIDINE
     Dosage: 20 MG, EVERY 12 HOURS
     Route: 048
  15. MORPHINE [Concomitant]
     Active Substance: MORPHINE
     Indication: PAIN
     Dosage: 1 MG/ML, AS NEEDED IN SODIUM CHLORIDE 0.8% IN 100 ML PCA, EVERY 15 MIN PRN
     Route: 041
  16. ALBUMIN HUMAN [Concomitant]
     Active Substance: ALBUMIN (HUMAN)
     Dosage: 25 G, ONCE
     Route: 042
  17. LASIX [Concomitant]
     Active Substance: FUROSEMIDE
     Dosage: 20 MG, ONCE, ADMINISTERED OVER 2-3 MINUTES
     Route: 042
  18. OXYCONTIN [Concomitant]
     Active Substance: OXYCODONE HYDROCHLORIDE
     Dosage: 20 MG, EVERY 12 HOURS
     Route: 048
  19. DIPRIVAN [Concomitant]
     Active Substance: PROPOFOL
     Indication: SEDATION
     Dosage: 0-50 MCG/KG/MIN
     Route: 041
  20. DUONEB [Concomitant]
     Active Substance: ALBUTEROL SULFATE\IPRATROPIUM BROMIDE
     Dosage: 3 ML, EVERY 6 HOUR
     Route: 055
  21. CEPASTAT [Concomitant]
     Active Substance: PHENOL
     Indication: OROPHARYNGEAL PAIN
     Dosage: 1 DF, EVERY 1 HOUR AS NEEDED
     Route: 002
  22. VANCOCIN [Concomitant]
     Active Substance: VANCOMYCIN HYDROCHLORIDE
     Dosage: 1250 MG IN SODIUM CHLORIDE 0.9% 250 ML, ONCE
     Route: 042
  23. SUBLIMAZE [Concomitant]
     Active Substance: FENTANYL CITRATE
     Dosage: 50 UG, EVERY 1 HOUR, AS NEEDED
     Route: 042
  24. ROXICODONE [Concomitant]
     Active Substance: OXYCODONE HYDROCHLORIDE
     Indication: PAIN
     Dosage: 5 MG, EVERY 6 HOURS AS NEEDED
     Route: 048

REACTIONS (2)
  - Pleural effusion [Unknown]
  - Cardiac tamponade [Unknown]
